FAERS Safety Report 12740731 (Version 3)
Quarter: 2017Q4

REPORT INFORMATION
  Report Type: Report from Study
  Country: AU (occurrence: AU)
  Receive Date: 20160914
  Receipt Date: 20171202
  Transmission Date: 20180320
  Serious: Yes (Other)
  Sender: FDA-Public Use
  Company Number: AU-ROCHE-1770001

PATIENT
  Age: 61 Year
  Sex: Female

DRUGS (14)
  1. ACTEMRA [Suspect]
     Active Substance: TOCILIZUMAB
     Route: 042
  2. FOLIC ACID. [Concomitant]
     Active Substance: FOLIC ACID
     Dosage: VITAMINS, DOSE-ONE DOSAGE FORM, STARTED 10 YEARS AGO,
     Route: 048
  3. KARVEZIDE [Concomitant]
     Active Substance: HYDROCHLOROTHIAZIDE\IRBESARTAN
     Dosage: ANTIHYPERTENSIVE, DOSE-300/40, STARTED 10 YEARS AGO,
     Route: 048
  4. PHYSIOTENS [Concomitant]
     Active Substance: MOXONIDINE
     Dosage: DOSE-ONE DOSAGE FORM, STARTED 9 YEARS AGO,
     Route: 048
  5. CALTRATE [Concomitant]
     Active Substance: CALCIUM CARBONATE
     Dosage: CALCIUM SUPPLEMENT
     Route: 048
  6. CELEBREX [Concomitant]
     Active Substance: CELECOXIB
     Dosage: ONGOING SINCE 4 YEARS
     Route: 048
  7. KARVEZIDE [Concomitant]
     Active Substance: HYDROCHLOROTHIAZIDE\IRBESARTAN
     Indication: HYPERTENSION
     Dosage: DOSE: 300/40. ONGOING SINCE 4 YEARS
     Route: 048
  8. ACTEMRA [Suspect]
     Active Substance: TOCILIZUMAB
     Route: 042
  9. OROXINE [Concomitant]
     Active Substance: LEVOTHYROXINE SODIUM
     Dosage: INDICATION: THYROXINE REPLACEMENT, STARTED 10 YEARS AGO,
     Route: 048
  10. ACTEMRA [Suspect]
     Active Substance: TOCILIZUMAB
     Indication: RHEUMATOID ARTHRITIS
     Route: 042
     Dates: start: 20121221
  11. INSULIN PUMP [Concomitant]
     Active Substance: INSULIN NOS
     Indication: DIABETES MELLITUS
     Dosage: 6 YEARS AGO
     Route: 058
  12. METHOTREXATE. [Concomitant]
     Active Substance: METHOTREXATE
     Dosage: ONGOING SINCE 4 YEARS, STARTED 10 YEARS AGO, D.MARD (DISEASE-MODIFYING ANTIRHEUMATIC DRUG)
     Route: 048
  13. CADUET [Concomitant]
     Active Substance: AMLODIPINE BESYLATE\ATORVASTATIN CALCIUM
     Indication: HYPERTENSION
     Dosage: ONGOING SINCE 4 YEARS, ANTIHYPERTENSIVE, DOSE-ONE DOSAGE FORM STARTED 10 YEARS AGO,
     Route: 048
  14. THYROXINE [Concomitant]
     Active Substance: LEVOTHYROXINE
     Indication: HORMONE REPLACEMENT THERAPY
     Dosage: ONGOING SINCE 4 YEARS
     Route: 048

REACTIONS (5)
  - Urinary tract infection [Not Recovered/Not Resolved]
  - Renal function test abnormal [Not Recovered/Not Resolved]
  - Urinary tract infection [Recovered/Resolved]
  - Liver function test abnormal [Recovered/Resolved]
  - Fatigue [Unknown]

NARRATIVE: CASE EVENT DATE: 201605
